FAERS Safety Report 5362902-1 (Version None)
Quarter: 2007Q2

REPORT INFORMATION
  Report Type: 
  Country: None (occurrence: None)
  Receive Date: 20070530
  Receipt Date: 20070329
  Transmission Date: 20071010
  Serious: No
  Sender: FDA-Public Use
  Company Number: 2007PV032605

PATIENT
  Age: 56 Year
  Sex: Female

DRUGS (3)
  1. BYETTA [Suspect]
     Indication: DIABETES MELLITUS NON-INSULIN-DEPENDENT
     Dosage: 5 MCG;BID;SC
     Route: 058
     Dates: start: 20070327
  2. GAVISCON [Suspect]
     Indication: NAUSEA
     Dosage: PO
     Route: 048
     Dates: start: 20070329
  3. GINGER CAPSULE [Suspect]
     Indication: NAUSEA

REACTIONS (5)
  - ABDOMINAL DISCOMFORT [None]
  - DECREASED APPETITE [None]
  - HYPERCHLORHYDRIA [None]
  - NAUSEA [None]
  - WEIGHT DECREASED [None]
